FAERS Safety Report 4899476-5 (Version None)
Quarter: 2006Q1

REPORT INFORMATION
  Report Type: 
  Country: None (occurrence: None)
  Receive Date: 20060131
  Receipt Date: 20060124
  Transmission Date: 20060701
  Serious: Yes (Death, Hospitalization, Other)
  Sender: FDA-Public Use
  Company Number: 2006AL000250

PATIENT
  Age: 79 Year
  Sex: Female

DRUGS (5)
  1. TRAMADOL [Suspect]
     Indication: SCIATICA
     Dosage: UBK
  2. KADIAN [Suspect]
  3. ARIPIPRAZOLE [Concomitant]
  4. ROFECOXIB [Concomitant]
  5. COPROXAMOL [Concomitant]

REACTIONS (10)
  - BASE EXCESS DECREASED [None]
  - BLOOD POTASSIUM DECREASED [None]
  - BRADYCARDIA [None]
  - COMA [None]
  - CONVULSION [None]
  - GENERAL PHYSICAL HEALTH DETERIORATION [None]
  - RESPIRATORY DISORDER [None]
  - SEPSIS [None]
  - SEROTONIN SYNDROME [None]
  - SHOCK [None]
